FAERS Safety Report 14340463 (Version 5)
Quarter: 2019Q4

REPORT INFORMATION
  Report Type: Spontaneous
  Country: ES (occurrence: ES)
  Receive Date: 20180101
  Receipt Date: 20191029
  Transmission Date: 20200122
  Serious: Yes (Other)
  Sender: FDA-Public Use
  Company Number: ES-AUROBINDO-AUR-APL-2017-46639

PATIENT
  Age: 80 Year
  Sex: Male

DRUGS (12)
  1. BICALUTAMIDE. [Concomitant]
     Active Substance: BICALUTAMIDE
     Indication: PROSTATE CANCER
  2. BICALUTAMIDE. [Concomitant]
     Active Substance: BICALUTAMIDE
     Indication: METASTASIS
  3. LEUPRORELIN [Concomitant]
     Active Substance: LEUPROLIDE ACETATE
     Indication: PROSTATE CANCER
  4. OMEPRAZOLE. [Concomitant]
     Active Substance: OMEPRAZOLE
     Indication: DYSLIPIDAEMIA
     Dosage: UNK
     Route: 048
  5. LEUPRORELIN [Concomitant]
     Active Substance: LEUPROLIDE ACETATE
     Indication: HORMONE THERAPY
     Dosage: UNK
     Route: 065
  6. ZOLEDRONIC ACID [Suspect]
     Active Substance: ZOLEDRONIC ACID
     Indication: PROSTATE CANCER
  7. ACLIDINIUM [Concomitant]
     Active Substance: ACLIDINIUM BROMIDE
     Indication: CHRONIC OBSTRUCTIVE PULMONARY DISEASE
     Dosage: UNK
  8. ATORVASTATIN [Concomitant]
     Active Substance: ATORVASTATIN
     Indication: DYSLIPIDAEMIA
     Dosage: UNK
     Route: 048
  9. BICALUTAMIDE. [Concomitant]
     Active Substance: BICALUTAMIDE
     Indication: DYSLIPIDAEMIA
     Dosage: UNK
     Route: 016
  10. ZOLEDRONIC ACID [Suspect]
     Active Substance: ZOLEDRONIC ACID
     Indication: METASTASIS
     Dosage: 4 MILLIGRAM, 1 IN A MONTH
     Route: 042
     Dates: start: 201311
  11. INDACATEROL [Concomitant]
     Active Substance: INDACATEROL
     Indication: CHRONIC OBSTRUCTIVE PULMONARY DISEASE
     Dosage: UNK
  12. LEUPRORELIN [Concomitant]
     Active Substance: LEUPROLIDE ACETATE
     Indication: METASTASIS

REACTIONS (13)
  - Aminoaciduria [Recovering/Resolving]
  - Acute kidney injury [Recovering/Resolving]
  - Hyperphosphaturia [Recovering/Resolving]
  - Renal failure [Recovering/Resolving]
  - Hypophosphataemia [Recovering/Resolving]
  - Hyperuricosuria [Recovering/Resolving]
  - Hypouricaemia [Recovering/Resolving]
  - Metabolic acidosis [Recovering/Resolving]
  - Nephropathy [Recovering/Resolving]
  - Proteinuria [Recovering/Resolving]
  - Fanconi syndrome acquired [Recovered/Resolved]
  - Renal tubular disorder [Recovering/Resolving]
  - Glycosuria [Recovering/Resolving]
